FAERS Safety Report 8594077-X (Version None)
Quarter: 2012Q3

REPORT INFORMATION
  Report Type: 
  Country: None (occurrence: None)
  Receive Date: 20120814
  Receipt Date: 20120730
  Transmission Date: 20120928
  Serious: Yes (Hospitalization)
  Sender: FDA-Public Use
  Company Number: HR-WATSON-2012-14144

PATIENT
  Age: 31 Year
  Sex: Female

DRUGS (2)
  1. OLANZAPINE [Suspect]
     Indication: PSYCHIATRIC SYMPTOM
     Route: 065
  2. FLUVOXAMINE MALEATE [Suspect]
     Indication: PSYCHIATRIC SYMPTOM
     Route: 065

REACTIONS (2)
  - AKATHISIA [None]
  - DRUG INTERACTION [None]
